FAERS Safety Report 8022943-2 (Version None)
Quarter: 2011Q4

REPORT INFORMATION
  Report Type: 
  Country: None (occurrence: None)
  Receive Date: 20111130
  Receipt Date: 20110907
  Transmission Date: 20120403
  Serious: Yes (Other)
  Sender: FDA-Public Use
  Company Number: 333964

PATIENT
  Age: 67 Year
  Sex: Female
  Weight: 103.9 kg

DRUGS (13)
  1. BETHANECHOL (BETHANECHOL) [Concomitant]
  2. VALTURNA (ALISKIREN FUMARATE, VALSARTAN) [Concomitant]
  3. LANTUS [Concomitant]
  4. NOVOLOG MIX 70/30 [Suspect]
     Indication: TYPE 2 DIABETES MELLITUS
     Dosage: 8 U, QD, SUBCUTANEOUS ; 10 U, QD, SUBCUTANEOUS ; 14 U, QD, SUBCUTANEOUS
     Route: 058
     Dates: start: 20110810
  5. NOVOLOG MIX 70/30 [Suspect]
     Indication: TYPE 2 DIABETES MELLITUS
     Dosage: 8 U, QD, SUBCUTANEOUS ; 10 U, QD, SUBCUTANEOUS ; 14 U, QD, SUBCUTANEOUS
     Route: 058
     Dates: start: 20110801, end: 20110801
  6. NOVOLOG MIX 70/30 [Suspect]
     Indication: TYPE 2 DIABETES MELLITUS
     Dosage: 8 U, QD, SUBCUTANEOUS ; 10 U, QD, SUBCUTANEOUS ; 14 U, QD, SUBCUTANEOUS
     Route: 058
     Dates: start: 20110801, end: 20110822
  7. NORVASC [Concomitant]
  8. SPIRONOLACTONE [Concomitant]
  9. BYSTOLIC [Concomitant]
  10. TENEX [Concomitant]
  11. JANUVIA [Concomitant]
  12. CRESTOR [Concomitant]
  13. TRIAMTERENE AND HYDROCHLOROTHIAZIDE (HYDROCHLOROTHIAZIDE, TRIAMTERENE) [Concomitant]

REACTIONS (3)
  - ORAL PAIN [None]
  - GLOSSODYNIA [None]
  - BLOOD GLUCOSE INCREASED [None]
